FAERS Safety Report 19091623 (Version 3)
Quarter: 2021Q3

REPORT INFORMATION
  Report Type: Report from Study
  Country: US (occurrence: US)
  Receive Date: 20210405
  Receipt Date: 20210916
  Transmission Date: 20211014
  Serious: No
  Sender: FDA-Public Use
  Company Number: NVSC2021US073335

PATIENT
  Sex: Male

DRUGS (2)
  1. COSENTYX [Suspect]
     Active Substance: SECUKINUMAB
     Dosage: 300 MG, QMO
     Route: 058
  2. COSENTYX [Suspect]
     Active Substance: SECUKINUMAB
     Indication: PSORIATIC ARTHROPATHY
     Dosage: 300 MG, QW(ONCE WEEKLY FOR 5 WEEKS,)
     Route: 058
     Dates: start: 20200223

REACTIONS (4)
  - Alopecia [Unknown]
  - Infrequent bowel movements [Recovering/Resolving]
  - Pain [Unknown]
  - Plantar fasciitis [Unknown]
